FAERS Safety Report 12354530 (Version 1)
Quarter: 2016Q2

REPORT INFORMATION
  Report Type: Spontaneous
  Country: US (occurrence: US)
  Receive Date: 20160511
  Receipt Date: 20160511
  Transmission Date: 20160815
  Serious: Yes (Death, Other)
  Sender: FDA-Public Use
  Company Number: US-GLAXOSMITHKLINE-US2016GSK061308

PATIENT
  Sex: Female

DRUGS (1)
  1. BUPROPION SR [Suspect]
     Active Substance: BUPROPION
     Indication: PRODUCT USED FOR UNKNOWN INDICATION

REACTIONS (4)
  - Pulmonary artery dilatation [Fatal]
  - Foetal exposure during pregnancy [Unknown]
  - Cystic lymphangioma [Fatal]
  - Transposition of the great vessels [Fatal]
